FAERS Safety Report 26129882 (Version 1)
Quarter: 2025Q4

REPORT INFORMATION
  Report Type: Spontaneous
  Country: GB (occurrence: GB)
  Receive Date: 20251208
  Receipt Date: 20251208
  Transmission Date: 20260118
  Serious: Yes (Other)
  Sender: ALEXION PHARMACEUTICALS
  Company Number: GB-ASTRAZENECA-202512GLO002070GB

PATIENT
  Age: 76 Year
  Sex: Female

DRUGS (1)
  1. DURVALUMAB [Suspect]
     Active Substance: DURVALUMAB
     Indication: Squamous cell carcinoma of lung
     Route: 065

REACTIONS (3)
  - Immunotoxicity [Unknown]
  - Immune-mediated myocarditis [Unknown]
  - Immune-mediated myositis [Unknown]
